FAERS Safety Report 12219310 (Version 1)
Quarter: 2016Q1

REPORT INFORMATION
  Report Type: Report from Study
  Country: US (occurrence: US)
  Receive Date: 20160329
  Receipt Date: 20160329
  Transmission Date: 20160526
  Serious: Yes (Hospitalization)
  Sender: FDA-Public Use
  Company Number: US-ABBVIE-16P-163-1555166-00

PATIENT
  Age: 8 Day
  Sex: Male
  Weight: 6.9 kg

DRUGS (4)
  1. SYNAGIS [Suspect]
     Active Substance: PALIVIZUMAB
     Indication: RESPIRATORY SYNCYTIAL VIRUS TEST
     Route: 030
     Dates: end: 20160116
  2. SODIUM CHLORIDE. [Concomitant]
     Active Substance: SODIUM CHLORIDE
     Indication: PRODUCT USED FOR UNKNOWN INDICATION
  3. VITAMIN D [Concomitant]
     Active Substance: CHOLECALCIFEROL
     Indication: PRODUCT USED FOR UNKNOWN INDICATION
     Dosage: DAILY
  4. POLY VI SOL [Concomitant]
     Indication: PRODUCT USED FOR UNKNOWN INDICATION
     Dosage: THREE TIMES A DAY

REACTIONS (9)
  - Dehydration [Recovered/Resolved]
  - Meconium ileus [Not Recovered/Not Resolved]
  - Neonatal respiratory failure [Not Recovered/Not Resolved]
  - Gastroenteritis viral [Recovered/Resolved]
  - Bacterial sepsis [Not Recovered/Not Resolved]
  - Gastroenteritis norovirus [Not Recovered/Not Resolved]
  - Intraventricular haemorrhage neonatal [Not Recovered/Not Resolved]
  - Hypophagia [Not Recovered/Not Resolved]
  - Thrombocytopenia [Recovered/Resolved]

NARRATIVE: CASE EVENT DATE: 20151002
